FAERS Safety Report 25750730 (Version 1)
Quarter: 2025Q3

REPORT INFORMATION
  Report Type: Spontaneous
  Country: EU (occurrence: EU)
  Receive Date: 20250902
  Receipt Date: 20250902
  Transmission Date: 20251021
  Serious: Yes (Other)
  Sender: MYLAN
  Company Number: None

PATIENT
  Age: 36 Year
  Sex: Female

DRUGS (12)
  1. BUPRENORPHINE [Suspect]
     Active Substance: BUPRENORPHINE
     Indication: Product used for unknown indication
     Dosage: 8 MILLIGRAM, QD (SOMETIMES UP TO 16 MG/DAY)
     Dates: start: 2011
  2. BUPRENORPHINE [Suspect]
     Active Substance: BUPRENORPHINE
     Dosage: 8 MILLIGRAM, QD (SOMETIMES UP TO 16 MG/DAY)
     Route: 060
     Dates: start: 2011
  3. BUPRENORPHINE [Suspect]
     Active Substance: BUPRENORPHINE
     Dosage: 8 MILLIGRAM, QD (SOMETIMES UP TO 16 MG/DAY)
     Route: 060
     Dates: start: 2011
  4. BUPRENORPHINE [Suspect]
     Active Substance: BUPRENORPHINE
     Dosage: 8 MILLIGRAM, QD (SOMETIMES UP TO 16 MG/DAY)
     Dates: start: 2011
  5. COCAINE [Suspect]
     Active Substance: COCAINE
     Indication: Product used for unknown indication
     Dosage: 2 GRAM, QD
     Dates: start: 2010
  6. COCAINE [Suspect]
     Active Substance: COCAINE
     Dosage: 2 GRAM, QD
     Route: 045
     Dates: start: 2010
  7. COCAINE [Suspect]
     Active Substance: COCAINE
     Dosage: 2 GRAM, QD
     Route: 045
     Dates: start: 2010
  8. COCAINE [Suspect]
     Active Substance: COCAINE
     Dosage: 2 GRAM, QD
     Dates: start: 2010
  9. ALCOHOL [Suspect]
     Active Substance: ALCOHOL
     Indication: Product used for unknown indication
  10. ALCOHOL [Suspect]
     Active Substance: ALCOHOL
     Route: 048
  11. ALCOHOL [Suspect]
     Active Substance: ALCOHOL
     Route: 048
  12. ALCOHOL [Suspect]
     Active Substance: ALCOHOL

REACTIONS (2)
  - Drug use disorder [Not Recovered/Not Resolved]
  - Substance use disorder [Not Recovered/Not Resolved]
